FAERS Safety Report 9331258 (Version 1)
Quarter: 2013Q2

REPORT INFORMATION
  Report Type: Spontaneous
  Country: CH (occurrence: None)
  Receive Date: 20130531
  Receipt Date: 20130531
  Transmission Date: 20140414
  Serious: Yes (Hospitalization)
  Sender: FDA-Public Use
  Company Number: CH-011814

PATIENT
  Age: 67 Year
  Sex: Female

DRUGS (7)
  1. MINIRIN [Suspect]
     Indication: DIABETES INSIPIDUS
     Dosage: TO CONTINUING?
     Route: 045
  2. TAXOTERE [Suspect]
     Indication: PRODUCT USED FOR UNKNOWN INDICATION
     Route: 040
     Dates: start: 20120614, end: 20120614
  3. FLUCONAZOLE [Suspect]
     Indication: PRODUCT USED FOR UNKNOWN INDICATION
     Dosage: TO CONTINUING?
     Route: 048
  4. NEUPOGEN [Concomitant]
  5. METOCLOPRAMIDE HYDROCHLORIDE [Concomitant]
  6. BACTRIM [Concomitant]
  7. IMOVANE [Concomitant]

REACTIONS (3)
  - Grand mal convulsion [None]
  - Hyponatraemia [None]
  - Drug interaction [None]
